FAERS Safety Report 16333517 (Version 6)
Quarter: 2020Q3

REPORT INFORMATION
  Report Type: Report from Study
  Country: US (occurrence: US)
  Receive Date: 20190520
  Receipt Date: 20200717
  Transmission Date: 20201102
  Serious: Yes (Hospitalization, Other)
  Sender: FDA-Public Use
  Company Number: US-ACTELION-A-NJ2019-188197

PATIENT
  Age: 69 Year
  Sex: Female
  Weight: 105.22 kg

DRUGS (7)
  1. UPTRAVI [Suspect]
     Active Substance: SELEXIPAG
     Dosage: 200 MCG, BID
     Route: 048
  2. LETAIRIS [Concomitant]
     Active Substance: AMBRISENTAN
  3. REVATIO [Concomitant]
     Active Substance: SILDENAFIL CITRATE
  4. UPTRAVI [Suspect]
     Active Substance: SELEXIPAG
     Indication: PULMONARY ARTERIAL HYPERTENSION
     Dosage: 400 MCG, BID
     Route: 048
  5. UPTRAVI [Suspect]
     Active Substance: SELEXIPAG
     Dosage: 1200 MCG, BID
     Route: 048
  6. ELIQUIS [Concomitant]
     Active Substance: APIXABAN
  7. UPTRAVI [Suspect]
     Active Substance: SELEXIPAG
     Dosage: 600 UNK
     Route: 048

REACTIONS (27)
  - Rectal haemorrhage [Unknown]
  - Oedema peripheral [Unknown]
  - Spinal fracture [Unknown]
  - Pain of skin [Not Recovered/Not Resolved]
  - Arthralgia [Unknown]
  - Dizziness [Unknown]
  - Kidney infection [Unknown]
  - Abdominal discomfort [Unknown]
  - Vomiting [Unknown]
  - Gastrointestinal haemorrhage [Unknown]
  - Feeling abnormal [Unknown]
  - Insomnia [Unknown]
  - Neck pain [Unknown]
  - Nausea [Unknown]
  - Diarrhoea [Unknown]
  - Haematochezia [Unknown]
  - Neck surgery [Unknown]
  - Depressed mood [Unknown]
  - Gingivitis [Unknown]
  - Constipation [Unknown]
  - Headache [Unknown]
  - Cardiac disorder [Unknown]
  - Sinusitis [Unknown]
  - Urinary tract infection [Unknown]
  - Rectal polyp [Unknown]
  - Gastric varices [Unknown]
  - Pain [Not Recovered/Not Resolved]

NARRATIVE: CASE EVENT DATE: 20200311
